FAERS Safety Report 6939283-2 (Version None)
Quarter: 2010Q3

REPORT INFORMATION
  Report Type: 
  Country: None (occurrence: None)
  Receive Date: 20100824
  Receipt Date: 20100817
  Transmission Date: 20110219
  Serious: Yes (Other)
  Sender: FDA-Public Use
  Company Number: US-TYCO HEALTHCARE/MALLINCKRODT-T201001819

PATIENT
  Sex: Female

DRUGS (2)
  1. OPTIRAY 350 [Suspect]
     Indication: COMPUTERISED TOMOGRAM
     Dosage: 100 ML, SINGLE
     Route: 042
     Dates: start: 20090512, end: 20090512
  2. PREDNISONE [Concomitant]
     Indication: PREMEDICATION
     Dosage: 50 MG TABLETS X3

REACTIONS (3)
  - SNEEZING [None]
  - THROAT IRRITATION [None]
  - URTICARIA [None]
